FAERS Safety Report 22001639 (Version 1)
Quarter: 2023Q1

REPORT INFORMATION
  Report Type: Spontaneous
  Country: US (occurrence: None)
  Receive Date: 20230215
  Receipt Date: 20230215
  Transmission Date: 20230418
  Serious: No
  Sender: FDA-Public Use
  Company Number: None

PATIENT
  Age: 52 Year
  Sex: Female
  Weight: 51.26 kg

DRUGS (1)
  1. HYCAMTIN [Suspect]
     Active Substance: TOPOTECAN HYDROCHLORIDE
     Indication: Lung carcinoma cell type unspecified stage 0
     Dosage: TAKE 3 CAPSULES BY MOUTH DAILY ON DAYS 1-5 OF A 21 DA CYCLE AS DIRECTE  D. TAKE ANTI-EMETIC (COMPAZI
     Route: 048
     Dates: start: 202301

REACTIONS (5)
  - Nausea [None]
  - Vomiting [None]
  - Mouth ulceration [None]
  - Blood potassium decreased [None]
  - Therapy interrupted [None]
